FAERS Safety Report 5094894-7 (Version None)
Quarter: 2006Q3

REPORT INFORMATION
  Report Type: 
  Country: None (occurrence: None)
  Receive Date: 20060728
  Receipt Date: 20060517
  Transmission Date: 20061208
  Serious: No
  Sender: FDA-Public Use
  Company Number: 253410

PATIENT
  Age: 38 Year
  Sex: Female

DRUGS (3)
  1. LEVEMIR [Suspect]
     Indication: DIABETES MELLITUS INSULIN-DEPENDENT
     Dosage: 6 IU, QD, SUBCUTANEOUS
     Route: 058
  2. NOVOLOG [Concomitant]
  3. NOVOPEN 3 (INSULIN DELIVERY DEVICE) [Concomitant]

REACTIONS (1)
  - BLOOD GLUCOSE DECREASED [None]
